FAERS Safety Report 5731130-X (Version None)
Quarter: 2008Q2

REPORT INFORMATION
  Report Type: 
  Country: None (occurrence: None)
  Receive Date: 20080507
  Receipt Date: 20080429
  Transmission Date: 20081010
  Serious: Yes (Hospitalization)
  Sender: FDA-Public Use
  Company Number: US-GENENTECH-254074

PATIENT
  Sex: Female
  Weight: 77 kg

DRUGS (15)
  1. BEVACIZUMAB [Suspect]
     Indication: COLON CANCER
     Dosage: 5 MG/KG, Q14D
     Route: 042
     Dates: start: 20070815
  2. OXALIPLATIN [Suspect]
     Indication: COLON CANCER
     Dosage: 85 MG/M2, Q14D
     Route: 042
     Dates: start: 20070815
  3. OXALIPLATIN [Suspect]
     Dosage: 65 MG/M2, Q14D
     Route: 042
     Dates: start: 20070914
  4. LEUCOVORIN CALCIUM [Suspect]
     Indication: COLON CANCER
     Dosage: 400 MG/M2, Q14D
     Route: 042
     Dates: start: 20070815
  5. FLUOROURACIL [Suspect]
     Indication: COLON CANCER
     Dosage: 400 MG/M2, Q14D
     Route: 040
     Dates: start: 20070815
  6. FLUOROURACIL [Suspect]
     Dosage: 320 MG/M2, Q14D
     Route: 040
     Dates: start: 20070914
  7. FLUOROURACIL [Suspect]
     Dosage: 2400 MG/M2, Q14D
     Route: 042
     Dates: start: 20070815
  8. FLUOROURACIL [Suspect]
     Dosage: 1920 MG/M2, Q14D
     Route: 042
     Dates: start: 20070914
  9. LISINOPRIL [Suspect]
     Indication: HYPERTENSION
     Dosage: 40 MG, QD
     Route: 048
     Dates: start: 19970225
  10. ATENOLOL [Suspect]
     Indication: HYPERTENSION
     Dosage: 50 MG, QD
     Route: 048
     Dates: start: 20070808
  11. CLONIDINE HYDROCHLORIDE [Concomitant]
     Indication: DRUG USE FOR UNKNOWN INDICATION
     Dosage: 0.1 MG, BID
     Route: 048
     Dates: start: 20070809
  12. HYDROCODONE BITARTRATE [Concomitant]
     Indication: DRUG USE FOR UNKNOWN INDICATION
     Dosage: UNK, PRN
     Route: 048
     Dates: start: 20070501
  13. ASCORBIC ACID [Concomitant]
     Indication: DRUG USE FOR UNKNOWN INDICATION
     Dosage: UNK, QD
     Route: 048
  14. VITAMIN E [Concomitant]
     Indication: DRUG USE FOR UNKNOWN INDICATION
     Dosage: UNK, QD
     Route: 048
  15. VITAMIN CAP [Concomitant]
     Indication: DRUG USE FOR UNKNOWN INDICATION
     Dosage: UNK, QD
     Route: 048

REACTIONS (1)
  - FLUSHING [None]
